FAERS Safety Report 15530678 (Version 1)
Quarter: 2018Q4

REPORT INFORMATION
  Report Type: Spontaneous
  Country: PL (occurrence: PL)
  Receive Date: 20181018
  Receipt Date: 20181018
  Transmission Date: 20190205
  Serious: Yes (Hospitalization, Other)
  Sender: FDA-Public Use
  Company Number: PL-009507513-1801POL007015

PATIENT
  Age: 37 Year
  Sex: Female

DRUGS (23)
  1. IRON DEXTRAN [Suspect]
     Active Substance: IRON DEXTRAN
     Dosage: 100 UNK
     Route: 048
     Dates: start: 201408
  2. CHOLECALCIFEROL [Concomitant]
     Active Substance: CHOLECALCIFEROL
  3. ASCORBIC ACID. [Concomitant]
     Active Substance: ASCORBIC ACID
     Dosage: UNK
     Dates: start: 201503
  4. LEVOTHYROXINE SODIUM. [Suspect]
     Active Substance: LEVOTHYROXINE SODIUM
     Indication: HYPOTHYROIDISM
     Dosage: 25 UG,QD
     Route: 065
     Dates: start: 20150501
  5. MALTOFER (IRON POLYMALTOSE) [Suspect]
     Active Substance: IRON POLYMALTOSE
     Dosage: UNK
     Route: 048
     Dates: start: 201503
  6. EPOETIN [Suspect]
     Active Substance: ERYTHROPOIETIN
     Dosage: 2000 IU,QW
     Route: 058
  7. ASPIRIN. [Suspect]
     Active Substance: ASPIRIN
     Indication: PROPHYLAXIS
     Dosage: 75 MG,UNK
     Route: 048
     Dates: start: 20150301
  8. EPOETIN BETA [Suspect]
     Active Substance: ERYTHROPOIETIN
     Dosage: 2000 U
     Route: 058
  9. ALFACALCIDOL [Suspect]
     Active Substance: ALFACALCIDOL
     Indication: HYPERPARATHYROIDISM
     Dosage: .25 UG,UNK
     Route: 065
  10. IRON DEXTRAN [Suspect]
     Active Substance: IRON DEXTRAN
     Dosage: 100 MG, QW
     Route: 042
  11. SPIRAMYCIN [Suspect]
     Active Substance: SPIRAMYCIN
     Indication: CYSTITIS
  12. EPOETIN [Suspect]
     Active Substance: ERYTHROPOIETIN
     Dosage: 4000 IU, QW
     Route: 058
     Dates: start: 20150801
  13. HEPARIN [Suspect]
     Active Substance: HEPARIN SODIUM
     Indication: ANTICOAGULANT THERAPY
     Dosage: UNK UNK,UNK
     Route: 065
  14. SIMVASTATIN. [Suspect]
     Active Substance: SIMVASTATIN
     Indication: HYPERCHOLESTEROLAEMIA
     Dosage: 20 MG, UNK
     Route: 065
     Dates: end: 2015
  15. TORSEMIDE. [Suspect]
     Active Substance: TORSEMIDE
     Indication: HYPERTENSION
     Dosage: 2.5 MG,UNK
     Route: 065
  16. IRON DEXTRAN [Suspect]
     Active Substance: IRON DEXTRAN
     Dosage: UNK
     Route: 048
     Dates: start: 201503
  17. IRON DEXTRAN [Suspect]
     Active Substance: IRON DEXTRAN
     Dosage: 100 UNK
     Route: 048
     Dates: start: 201408
  18. FERINJECT [Suspect]
     Active Substance: FERRIC CARBOXYMALTOSE
     Dosage: 100 MG, UNK
     Route: 042
     Dates: start: 201408
  19. SPIRAMYCIN [Suspect]
     Active Substance: SPIRAMYCIN
     Indication: TOXOPLASMOSIS
     Dosage: UNK UNK,UNK
     Route: 065
     Dates: start: 20150501
  20. IRON SUCROSE [Suspect]
     Active Substance: IRON SUCROSE
     Dosage: 100 MG, UNK
     Route: 042
     Dates: start: 201408
  21. FOLIC ACID. [Suspect]
     Active Substance: FOLIC ACID
     Dosage: 15 MG,UNK
     Route: 042
     Dates: start: 20150301
  22. CEFUROXIME. [Suspect]
     Active Substance: CEFUROXIME
     Indication: CYSTITIS
     Dosage: UNK UNK,UNK
     Route: 065
     Dates: start: 20150501
  23. METHYLDOPA. [Suspect]
     Active Substance: METHYLDOPA
     Indication: HYPERTENSION
     Dosage: UNK UNK,UNK
     Route: 065
     Dates: start: 20150301

REACTIONS (3)
  - Off label use [Unknown]
  - Exposure during pregnancy [Unknown]
  - No adverse event [Unknown]
